FAERS Safety Report 10953924 (Version 1)
Quarter: 2015Q1

REPORT INFORMATION
  Report Type: Spontaneous
  Country: US (occurrence: None)
  Receive Date: 20150226
  Receipt Date: 20150226
  Transmission Date: 20150721
  Serious: Yes (Hospitalization)
  Sender: FDA-Public Use
  Company Number: TAP2004Q00634

PATIENT
  Age: 51 Year
  Sex: Female

DRUGS (3)
  1. PREVACID [Suspect]
     Active Substance: LANSOPRAZOLE
     Indication: VOCAL CORD DISORDER
     Dosage: 1 IN 1 DAY
     Dates: start: 200309
  2. DOXEPIN [Concomitant]
     Active Substance: DOXEPIN
  3. ALLEGRA (FEXOFENADINE HYDROCHLORIDE) [Concomitant]

REACTIONS (2)
  - Fatigue [None]
  - Anaemia [None]

NARRATIVE: CASE EVENT DATE: 200311
